FAERS Safety Report 5701946-4 (Version None)
Quarter: 2008Q2

REPORT INFORMATION
  Report Type: 
  Country: None (occurrence: None)
  Receive Date: 20080411
  Receipt Date: 20080403
  Transmission Date: 20081010
  Serious: Yes (Disabling, Other)
  Sender: FDA-Public Use
  Company Number: PHRM2008FR01193

PATIENT
  Age: 82 Year
  Sex: Male

DRUGS (7)
  1. SECTRAL [Concomitant]
  2. ACUITEL [Concomitant]
  3. LEVOTHYROXINE SODIUM [Concomitant]
  4. KARDEGIC [Concomitant]
  5. LEXOMIL [Concomitant]
  6. LYTOS [Suspect]
     Route: 048
     Dates: start: 20061001, end: 20070601
  7. ZOMETA [Suspect]
     Dosage: UNK, UNK
     Route: 042
     Dates: start: 20050623, end: 20060101

REACTIONS (2)
  - ABSCESS [None]
  - OSTEONECROSIS [None]
